FAERS Safety Report 11483600 (Version 1)
Quarter: 2015Q3

REPORT INFORMATION
  Report Type: Spontaneous
  Country: US (occurrence: US)
  Receive Date: 20150909
  Receipt Date: 20150909
  Transmission Date: 20151125
  Serious: No
  Sender: FDA-Public Use
  Company Number: US-JAZZ-2015-US-001936

PATIENT
  Age: 57 Year
  Sex: Female
  Weight: 83.9 kg

DRUGS (2)
  1. XANAX [Concomitant]
     Active Substance: ALPRAZOLAM
     Indication: SLEEP DISORDER
     Dosage: UNK
     Route: 048
     Dates: start: 201501
  2. XYREM [Suspect]
     Active Substance: SODIUM OXYBATE
     Indication: NARCOLEPSY
     Dosage: 2.25 G, BID
     Route: 048
     Dates: start: 20150123, end: 20150125

REACTIONS (2)
  - Nausea [Unknown]
  - Erythema [Unknown]

NARRATIVE: CASE EVENT DATE: 20150126
